FAERS Safety Report 6379158-3 (Version None)
Quarter: 2009Q3

REPORT INFORMATION
  Report Type: 
  Country: None (occurrence: None)
  Receive Date: 20090921
  Receipt Date: 20090911
  Transmission Date: 20100115
  Serious: Yes (Hospitalization)
  Sender: FDA-Public Use
  Company Number: 2009AP003585

PATIENT
  Age: 60 Year
  Sex: Male

DRUGS (9)
  1. CLONAZEPAM [Suspect]
     Dosage: 2 MG; TID
  2. LORAZEPAM [Concomitant]
  3. QUETIAPINE FUMARATE [Concomitant]
  4. FLUOXETINE HCL [Concomitant]
  5. .............................. [Concomitant]
  6. PRAZSOIN HCL [Concomitant]
  7. THIAMINE HCL [Concomitant]
  8. FOLATE SODIUM [Concomitant]
  9. MULTI-VITAMINS [Concomitant]

REACTIONS (19)
  - AMNESIA [None]
  - BLOOD CREATINE PHOSPHOKINASE INCREASED [None]
  - BLOOD SODIUM DECREASED [None]
  - CATATONIA [None]
  - CONFUSIONAL STATE [None]
  - DIET REFUSAL [None]
  - DRUG INEFFECTIVE [None]
  - DRUG WITHDRAWAL SYNDROME [None]
  - FLUSHING [None]
  - GRIMACING [None]
  - HYPERHIDROSIS [None]
  - IMMOBILE [None]
  - MUSCLE RIGIDITY [None]
  - MUTISM [None]
  - NEGATIVISM [None]
  - POST-TRAUMATIC STRESS DISORDER [None]
  - STEREOTYPY [None]
  - TACHYCARDIA [None]
  - TACHYPNOEA [None]
